FAERS Safety Report 6255684-2 (Version None)
Quarter: 2009Q3

REPORT INFORMATION
  Report Type: 
  Country: None (occurrence: None)
  Receive Date: 20090701
  Receipt Date: 20090622
  Transmission Date: 20100115
  Serious: Yes (Other)
  Sender: FDA-Public Use
  Company Number: 09US002142

PATIENT
  Age: 48 Year
  Sex: Male
  Weight: 53.5 kg

DRUGS (5)
  1. ACETAMINOPHEN [Suspect]
     Dosage: 30 TABLETS OVER 3 DAYS (15,000 MG), ORAL
     Route: 048
     Dates: start: 20090619, end: 20090621
  2. ASPIRIN [Suspect]
     Dosage: 15 TABLETS OVER 3 DAYS, ORAL
     Route: 048
     Dates: start: 20090619, end: 20090621
  3. CYMBALTA [Concomitant]
  4. ANXIOLYTICS [Concomitant]
  5. ETHYL ALCOHOL (ETHANOL) [Concomitant]

REACTIONS (5)
  - ALCOHOL USE [None]
  - DEMENTIA [None]
  - DYSARTHRIA [None]
  - INTENTIONAL OVERDOSE [None]
  - MEMORY IMPAIRMENT [None]
